FAERS Safety Report 6873805-5 (Version None)
Quarter: 2010Q3

REPORT INFORMATION
  Report Type: 
  Country: None (occurrence: None)
  Receive Date: 20100723
  Receipt Date: 20090601
  Transmission Date: 20110219
  Serious: No
  Sender: FDA-Public Use
  Company Number: US-PFIZER INC-2009177868

PATIENT
  Sex: Female

DRUGS (1)
  1. CHANTIX [Suspect]
     Dosage: UNK
     Dates: start: 20090201

REACTIONS (5)
  - ABNORMAL DREAMS [None]
  - DRY MOUTH [None]
  - DYSGEUSIA [None]
  - NASAL DRYNESS [None]
  - PHARYNGEAL DISORDER [None]
